FAERS Safety Report 7781096-6 (Version None)
Quarter: 2011Q3

REPORT INFORMATION
  Report Type: 
  Country: None (occurrence: None)
  Receive Date: 20110923
  Receipt Date: 20110921
  Transmission Date: 20111222
  Serious: Yes (Hospitalization)
  Sender: FDA-Public Use
  Company Number: DAV-FUR-11-18

PATIENT
  Sex: Female

DRUGS (2)
  1. DEXAMETHASONE [Concomitant]
  2. FUROSEMIDE [Suspect]
     Indication: LUNG DISORDER

REACTIONS (2)
  - NEPHROLITHIASIS [None]
  - NEPHROCALCINOSIS [None]
